FAERS Safety Report 4301934-9 (Version None)
Quarter: 2004Q1

REPORT INFORMATION
  Report Type: 
  Country: None (occurrence: None)
  Receive Date: 20040220
  Receipt Date: 20040202
  Transmission Date: 20041129
  Serious: Yes (Hospitalization)
  Sender: FDA-Public Use
  Company Number: CIO04000381

PATIENT
  Age: 20 Year
  Sex: Female
  Weight: 43.5 kg

DRUGS (1)
  1. 44 COUGH RELIEF SYRUP CHERRY FLAVOR (ETHANOL 5% MENTHOL 10 MG DEXTROME [Suspect]
     Indication: NASOPHARYNGITIS
     Dosage: 10 ML, 1/DAY FOR 1 DAY, ORAL
     Route: 048
     Dates: start: 20031227, end: 20031227

REACTIONS (2)
  - CONVULSION [None]
  - IMMOBILE [None]
